FAERS Safety Report 7734665-3 (Version None)
Quarter: 2011Q3

REPORT INFORMATION
  Report Type: 
  Country: None (occurrence: None)
  Receive Date: 20110907
  Receipt Date: 20110830
  Transmission Date: 20111222
  Serious: Yes (Other)
  Sender: FDA-Public Use
  Company Number: JP-MERCK-1106USA00421

PATIENT

DRUGS (1)
  1. ZETIA [Suspect]
     Indication: HYPERCHOLESTEROLAEMIA
     Route: 048
     Dates: start: 20110101, end: 20110501

REACTIONS (2)
  - NEOPLASM MALIGNANT [None]
  - BLOOD LACTATE DEHYDROGENASE INCREASED [None]
